FAERS Safety Report 6856465-9 (Version None)
Quarter: 2010Q3

REPORT INFORMATION
  Report Type: 
  Country: None (occurrence: None)
  Receive Date: 20100719
  Receipt Date: 20100708
  Transmission Date: 20110219
  Serious: Yes (Other)
  Sender: FDA-Public Use
  Company Number: US-JNJFOC-20100702744

PATIENT
  Sex: Female
  Weight: 82.56 kg

DRUGS (8)
  1. REMICADE [Suspect]
     Indication: RHEUMATOID ARTHRITIS
     Route: 042
  2. REMICADE [Suspect]
     Route: 042
  3. REMICADE [Suspect]
     Route: 042
  4. CALCIUM [Concomitant]
     Indication: MEDICAL DIET
  5. VITAMIN D [Concomitant]
     Indication: MEDICAL DIET
  6. FISH OIL [Concomitant]
     Indication: MEDICAL DIET
  7. PREDNISONE [Concomitant]
     Indication: RHEUMATOID ARTHRITIS
  8. PIROXICAM [Concomitant]
     Indication: PAIN

REACTIONS (7)
  - ARTHRALGIA [None]
  - BLOOD DISORDER [None]
  - BLOOD PRESSURE INCREASED [None]
  - EPISTAXIS [None]
  - HERPES VIRUS INFECTION [None]
  - HOT FLUSH [None]
  - TRIGGER FINGER [None]
